FAERS Safety Report 7132855-4 (Version None)
Quarter: 2010Q4

REPORT INFORMATION
  Report Type: 
  Country: None (occurrence: None)
  Receive Date: 20101202
  Receipt Date: 20101125
  Transmission Date: 20110411
  Serious: Yes (Death, Hospitalization)
  Sender: FDA-Public Use
  Company Number: RU-BRISTOL-MYERS SQUIBB COMPANY-15409253

PATIENT
  Age: 20 Year
  Sex: Male

DRUGS (2)
  1. ABATACEPT [Suspect]
     Indication: SYSTEMIC LUPUS ERYTHEMATOSUS
     Dosage: OPEN: 04MAR10-18NOV2010(750MG);  BLINDED: 05MAR09-04FEB2010
     Route: 042
     Dates: start: 20100304
  2. SULPERAZON [Concomitant]
     Dosage: SULPERAZON # 10
     Route: 042
     Dates: start: 20101101, end: 20101114

REACTIONS (15)
  - ASTHENIA [None]
  - COMPRESSION FRACTURE [None]
  - DIARRHOEA [None]
  - HAEMODIALYSIS [None]
  - LUMBAR VERTEBRAL FRACTURE [None]
  - LUPUS NEPHRITIS [None]
  - OEDEMA PERIPHERAL [None]
  - PAIN IN EXTREMITY [None]
  - PALPITATIONS [None]
  - RENAL FAILURE [None]
  - RENAL FAILURE ACUTE [None]
  - SEPSIS [None]
  - THIRST [None]
  - THORACIC VERTEBRAL FRACTURE [None]
  - VOMITING [None]
